FAERS Safety Report 10057031 (Version 1)
Quarter: 2014Q2

REPORT INFORMATION
  Report Type: Spontaneous
  Country: NZ (occurrence: NZ)
  Receive Date: 20140403
  Receipt Date: 20140403
  Transmission Date: 20141212
  Serious: Yes (Other)
  Sender: FDA-Public Use
  Company Number: NZ-BANPHARM-20142484

PATIENT
  Age: 45 Year
  Sex: Female

DRUGS (1)
  1. CODEINE\IBUPROFEN [Suspect]
     Dosage: 72 DF,

REACTIONS (6)
  - Renal failure acute [Recovered/Resolved]
  - Electrolyte imbalance [Recovered/Resolved]
  - Renal tubular acidosis [Recovered/Resolved]
  - Lung infiltration [Recovered/Resolved]
  - Eosinophilia myalgia syndrome [Recovered/Resolved]
  - Overdose [Unknown]
